FAERS Safety Report 5632691-1 (Version None)
Quarter: 2008Q1

REPORT INFORMATION
  Report Type: 
  Country: None (occurrence: None)
  Receive Date: 20080220
  Receipt Date: 20080208
  Transmission Date: 20080703
  Serious: Yes (Other)
  Sender: FDA-Public Use
  Company Number: US-PFIZER INC-2008014698

PATIENT
  Sex: Female
  Weight: 72.6 kg

DRUGS (5)
  1. CHANTIX [Suspect]
     Indication: SMOKING CESSATION THERAPY
     Dosage: TEXT:DAILY
     Dates: start: 20071201, end: 20080101
  2. PAXIL [Concomitant]
     Indication: BIPOLAR DISORDER
  3. LISINOPRIL [Concomitant]
     Indication: HYPERTENSION
  4. MOMETASONE FUROATE [Concomitant]
     Indication: HYPERSENSITIVITY
  5. LORATADINE [Concomitant]
     Indication: HYPERSENSITIVITY

REACTIONS (1)
  - BIPOLAR DISORDER [None]
